FAERS Safety Report 6817300-8 (Version None)
Quarter: 2010Q3

REPORT INFORMATION
  Report Type: 
  Country: None (occurrence: None)
  Receive Date: 20100706
  Receipt Date: 20100625
  Transmission Date: 20110219
  Serious: Yes (Hospitalization)
  Sender: FDA-Public Use
  Company Number: JP-ROCHE-590849

PATIENT
  Sex: Female
  Weight: 42 kg

DRUGS (36)
  1. TOCILIZUMAB [Suspect]
     Indication: RHEUMATOID ARTHRITIS
     Route: 041
     Dates: start: 20080705, end: 20080705
  2. TOCILIZUMAB [Suspect]
     Route: 041
     Dates: start: 20080819, end: 20080819
  3. TOCILIZUMAB [Suspect]
     Route: 041
     Dates: start: 20080917, end: 20080917
  4. TOCILIZUMAB [Suspect]
     Route: 041
     Dates: start: 20081015, end: 20081015
  5. TOCILIZUMAB [Suspect]
     Route: 041
     Dates: start: 20081112, end: 20081112
  6. TOCILIZUMAB [Suspect]
     Route: 041
     Dates: start: 20081210, end: 20081210
  7. TOCILIZUMAB [Suspect]
     Route: 041
     Dates: start: 20090107, end: 20090107
  8. TOCILIZUMAB [Suspect]
     Route: 041
     Dates: start: 20090204, end: 20090204
  9. TOCILIZUMAB [Suspect]
     Route: 041
     Dates: start: 20090304, end: 20090304
  10. TOCILIZUMAB [Suspect]
     Route: 041
     Dates: start: 20090415, end: 20090415
  11. TOCILIZUMAB [Suspect]
     Route: 041
     Dates: start: 20090513, end: 20090513
  12. PREDONINE [Suspect]
     Indication: RHEUMATOID ARTHRITIS
     Route: 048
     Dates: start: 20071112, end: 20080811
  13. PREDONINE [Suspect]
     Route: 048
     Dates: start: 20080812, end: 20080818
  14. PREDONINE [Suspect]
     Route: 048
     Dates: start: 20080819, end: 20090625
  15. PREDONINE [Suspect]
     Route: 048
     Dates: start: 20090626, end: 20090705
  16. PREDONINE [Suspect]
     Route: 048
     Dates: start: 20090706, end: 20090714
  17. PREDONINE [Suspect]
     Route: 048
     Dates: start: 20090715, end: 20090728
  18. PREDONINE [Suspect]
     Route: 048
     Dates: start: 20090729, end: 20090811
  19. PREDONINE [Suspect]
     Route: 048
     Dates: start: 20090812
  20. ISCOTIN [Concomitant]
     Dosage: FORM: PERORAL AGENT
     Route: 048
     Dates: start: 20080507, end: 20080803
  21. ISCOTIN [Concomitant]
     Route: 048
     Dates: end: 20090715
  22. LOXONIN [Concomitant]
     Route: 048
     Dates: start: 20080308, end: 20080803
  23. LOXONIN [Concomitant]
     Route: 048
     Dates: end: 20090715
  24. CATLEP [Concomitant]
     Dosage: FORM: TAPE; NOTE: PROPERLY ADJUSTED
     Route: 061
     Dates: start: 20080308, end: 20090715
  25. LENDORMIN [Concomitant]
     Route: 048
     Dates: start: 20080308, end: 20080803
  26. LENDORMIN [Concomitant]
     Route: 048
     Dates: end: 20090715
  27. BONALON [Concomitant]
     Route: 048
     Dates: start: 20080308, end: 20080803
  28. BONALON [Concomitant]
     Route: 048
     Dates: end: 20090715
  29. PARIET [Concomitant]
     Route: 048
     Dates: start: 20080308, end: 20080803
  30. PARIET [Concomitant]
     Route: 048
     Dates: end: 20090715
  31. JUVELA [Concomitant]
     Dosage: FORM: PERORAL AGENT
     Route: 048
     Dates: start: 20080308, end: 20080803
  32. JUVELA [Concomitant]
     Route: 048
     Dates: end: 20090715
  33. MUCOSTA [Concomitant]
     Dosage: FORM: PERORAL AGENT
     Route: 048
     Dates: start: 20080308, end: 20080803
  34. MUCOSTA [Concomitant]
     Route: 048
     Dates: end: 20090715
  35. PYDOXAL [Concomitant]
     Dosage: TRDE NAME: PYDOXAL TAB.
     Route: 048
     Dates: start: 20080308, end: 20080803
  36. PYDOXAL [Concomitant]
     Route: 048
     Dates: end: 20090715

REACTIONS (4)
  - ABSCESS ORAL [None]
  - ORGANISING PNEUMONIA [None]
  - PNEUMONIA BACTERIAL [None]
  - RASH [None]
